FAERS Safety Report 4974849-0 (Version None)
Quarter: 2006Q1

REPORT INFORMATION
  Report Type: 
  Country: None (occurrence: None)
  Receive Date: 20060215
  Receipt Date: 20050218
  Transmission Date: 20060701
  Serious: Yes (Other)
  Sender: FDA-Public Use
  Company Number: 2005034493

PATIENT
  Age: 55 Year
  Sex: Male

DRUGS (8)
  1. DAYPRO [Suspect]
     Indication: ARTHRITIS
     Dosage: 600 MG (600 MG, 1 IN 1 D), ORAL
     Route: 048
     Dates: start: 20040902
  2. OLMESARTAN MEDOXOMIL (OLMESARTAN MEDOXOMIL) [Suspect]
     Indication: CARDIAC FAILURE CONGESTIVE
     Dosage: (DAILY), ORAL
     Route: 048
     Dates: start: 20041101
  3. OLMESARTAN MEDOXOMIL (OLMESARTAN MEDOXOMIL) [Suspect]
     Indication: HYPERTENSION
     Dosage: (DAILY), ORAL
     Route: 048
     Dates: start: 20041101
  4. BISOPROLOL FUMARATE AND HYDROCHLOROTHIAZIDE [Concomitant]
  5. AMLODIPINE BESYLATE [Concomitant]
  6. FLUVASTATIN SODIUM (FLUVASTATIN SODIUM) [Concomitant]
  7. PIOGLITAZONE HCL [Concomitant]
  8. ASPIRIN [Concomitant]

REACTIONS (1)
  - RENAL FAILURE [None]
